FAERS Safety Report 9351479 (Version 2)
Quarter: 2013Q4

REPORT INFORMATION
  Report Type: Report from Study
  Country: JP (occurrence: JP)
  Receive Date: 20130617
  Receipt Date: 20131025
  Transmission Date: 20140711
  Serious: Yes (Death, Life-Threatening, Hospitalization, Other)
  Sender: FDA-Public Use
  Company Number: JP-009507513-2009SP036558

PATIENT
  Age: 61 Year
  Sex: Male
  Weight: 66 kg

DRUGS (24)
  1. TEMOZOLOMIDE [Suspect]
     Indication: ASTROCYTOMA
     Dosage: UNK
     Route: 048
     Dates: start: 20060225, end: 20060913
  2. TEMOZOLOMIDE [Suspect]
     Dosage: 200 MG/ SQM, QD
     Route: 048
     Dates: start: 20061007, end: 20061011
  3. TEMOZOLOMIDE [Suspect]
     Dosage: 200 MG/ SQM, QD
     Route: 048
     Dates: start: 20061111, end: 20061115
  4. TEMOZOLOMIDE [Suspect]
     Dosage: 200 MG/ SQM, QD
     Route: 048
     Dates: start: 20061209, end: 20061213
  5. TEMOZOLOMIDE [Suspect]
     Dosage: 200 MG/ SQM, QD
     Route: 048
     Dates: start: 20070106, end: 20070110
  6. TEMOZOLOMIDE [Suspect]
     Dosage: 200 MG/ SQM, QD
     Route: 048
     Dates: start: 20070203, end: 20070207
  7. TEMOZOLOMIDE [Suspect]
     Dosage: 200 MG/ SQM, QD
     Route: 048
     Dates: start: 20070303, end: 20070307
  8. TEMOZOLOMIDE [Suspect]
     Dosage: 200 MG/ SQM, QD
     Route: 048
     Dates: start: 20070331, end: 20070404
  9. TEMOZOLOMIDE [Suspect]
     Dosage: 200 MG/ SQM, QD
     Route: 048
     Dates: start: 20070428, end: 20070502
  10. TEMOZOLOMIDE [Suspect]
     Dosage: 200 MG/ SQM, QD
     Route: 048
     Dates: start: 20070526, end: 20070530
  11. TEMOZOLOMIDE [Suspect]
     Dosage: 200 MG/ SQM, QD
     Route: 048
     Dates: start: 20070630, end: 20070704
  12. TEMOZOLOMIDE [Suspect]
     Dosage: 200 MG/ SQM, QD
     Route: 048
     Dates: start: 20070728, end: 20070801
  13. TEMOZOLOMIDE [Suspect]
     Dosage: 200 MG/ SQM, QD
     Route: 048
     Dates: start: 20070825, end: 20070829
  14. TEMOZOLOMIDE [Suspect]
     Dosage: 200 MG/ SQM, QD
     Route: 048
     Dates: start: 20070922, end: 20070926
  15. TEMOZOLOMIDE [Suspect]
     Dosage: 200 MG/ SQM, QD
     Route: 048
     Dates: start: 20071020, end: 20071024
  16. TEMOZOLOMIDE [Suspect]
     Dosage: 200 MG/ SQM, QD
     Route: 048
     Dates: start: 20071117, end: 20071121
  17. TEMOZOLOMIDE [Suspect]
     Dosage: 200 MG/ SQM, QD
     Route: 048
     Dates: start: 20071214, end: 20071218
  18. TEMOZOLOMIDE [Suspect]
     Dosage: 8750 MG/M2 (DAILY DOSE UNKNOWN)
     Route: 048
  19. NIDRAN [Suspect]
     Indication: ASTROCYTOMA
     Dosage: DAILY DOSE UNKNOWN
     Dates: start: 20051007, end: 20051209
  20. DEPAKENE [Suspect]
     Indication: PROPHYLAXIS
     Dosage: DAILY DOSE UNKNOWN (DEPAKENE-R)
     Route: 048
  21. NAVOBAN [Concomitant]
     Indication: PROPHYLAXIS
     Dosage: IT PRESCRIBES IT ON THE TEM PRESCRIPTION DAY. (DOSAGE U)
     Route: 048
     Dates: end: 20071218
  22. MAGNESIUM OXIDE [Concomitant]
     Indication: CONSTIPATION
     Dosage: IT PRESCRIBES IT THE AS NEEDED ON THE TEM PRESCRIPTION DAY. (DOSAGE U) FORMULATION: POR
     Route: 048
     Dates: end: 20071218
  23. MAGNESIUM OXIDE [Concomitant]
     Dosage: FORMULATION: POR
     Route: 048
     Dates: start: 20080808, end: 20080906
  24. PURSENNID (SENNOSIDES) [Concomitant]
     Indication: CONSTIPATION
     Dosage: DAILY DOSE UNKNOWN
     Route: 048
     Dates: end: 20061022

REACTIONS (10)
  - Myelodysplastic syndrome transformation [Fatal]
  - Disseminated intravascular coagulation [Fatal]
  - Myelodysplastic syndrome [Fatal]
  - Infection [Not Recovered/Not Resolved]
  - Acute myeloid leukaemia [Unknown]
  - Myelodysplastic syndrome [Unknown]
  - White blood cell count decreased [Recovering/Resolving]
  - Neutrophil count decreased [Recovering/Resolving]
  - Platelet count decreased [Recovering/Resolving]
  - Constipation [Recovering/Resolving]
